FAERS Safety Report 5022352-4 (Version None)
Quarter: 2006Q2

REPORT INFORMATION
  Report Type: 
  Country: None (occurrence: None)
  Receive Date: 20060609
  Receipt Date: 20060529
  Transmission Date: 20061013
  Serious: Yes (Other)
  Sender: FDA-Public Use
  Company Number: PHBS2006NZ08021

PATIENT
  Age: 51 Year
  Sex: Male

DRUGS (1)
  1. ZOLEDRONIC ACID [Suspect]
     Indication: MULTIPLE MYELOMA
     Dosage: 4 MG, QMO
     Route: 042
     Dates: start: 20040601

REACTIONS (4)
  - BONE CANCER METASTATIC [None]
  - IMPAIRED HEALING [None]
  - LIP AND/OR ORAL CAVITY CANCER [None]
  - MOUTH ULCERATION [None]
